FAERS Safety Report 5808303-0 (Version None)
Quarter: 2008Q3

REPORT INFORMATION
  Report Type: 
  Country: None (occurrence: None)
  Receive Date: 20080709
  Receipt Date: 20080624
  Transmission Date: 20090109
  Serious: Yes (Other)
  Sender: FDA-Public Use
  Company Number: SPI200800318

PATIENT

DRUGS (1)
  1. AMITIZA [Suspect]
     Indication: UNEVALUABLE EVENT
     Dosage: 8 MCG, UNK, ORAL
     Route: 048
     Dates: start: 20080601, end: 20080601

REACTIONS (1)
  - COLITIS ISCHAEMIC [None]
